FAERS Safety Report 21462246 (Version 1)
Quarter: 2022Q4

REPORT INFORMATION
  Report Type: Spontaneous
  Country: US (occurrence: US)
  Receive Date: 20221016
  Receipt Date: 20221016
  Transmission Date: 20230112
  Serious: No
  Sender: FDA-Public Use
  Company Number: US-Accord-271851

PATIENT
  Age: 74 Year
  Sex: Female

DRUGS (17)
  1. GLIMEPIRIDE [Suspect]
     Active Substance: GLIMEPIRIDE
     Indication: Product used for unknown indication
  2. MIFEPRISTONE [Suspect]
     Active Substance: MIFEPRISTONE
     Indication: Cushing^s syndrome
     Dosage: QD
     Route: 048
     Dates: start: 20220525, end: 20220704
  3. ATORVASTATIN [Concomitant]
     Active Substance: ATORVASTATIN
  4. BYETTA [Concomitant]
     Active Substance: EXENATIDE
  5. CALCIUM [Concomitant]
     Active Substance: CALCIUM
  6. EVISTA [Concomitant]
     Active Substance: RALOXIFENE HYDROCHLORIDE
  7. FLUCONAZOLE [Concomitant]
     Active Substance: FLUCONAZOLE
  8. GLUMETZA [Concomitant]
     Active Substance: METFORMIN HYDROCHLORIDE
  9. HYDROCHLOROTHIAZIDE [Concomitant]
     Active Substance: HYDROCHLOROTHIAZIDE
  10. MINERALS\VITAMINS [Concomitant]
     Active Substance: MINERALS\VITAMINS
  11. JARDIANCE [Concomitant]
     Active Substance: EMPAGLIFLOZIN
  12. KETOCONAZOLE [Concomitant]
     Active Substance: KETOCONAZOLE
  13. LISINOPRIL [Concomitant]
     Active Substance: LISINOPRIL
  14. LUXIQ [Concomitant]
     Active Substance: BETAMETHASONE VALERATE
  15. METOPROLOL [Concomitant]
     Active Substance: METOPROLOL
  16. TRULICITY [Concomitant]
     Active Substance: DULAGLUTIDE
  17. MIFEPRISTONE [Suspect]
     Active Substance: MIFEPRISTONE
     Indication: Cushing^s syndrome
     Dosage: QD
     Route: 048
     Dates: start: 20220705

REACTIONS (4)
  - Nausea [Not Recovered/Not Resolved]
  - Vomiting [Unknown]
  - Pain in extremity [Unknown]
  - Blood glucose decreased [Unknown]

NARRATIVE: CASE EVENT DATE: 20220101
